FAERS Safety Report 5540300-5 (Version None)
Quarter: 2007Q4

REPORT INFORMATION
  Report Type: 
  Country: None (occurrence: None)
  Receive Date: 20071208
  Receipt Date: 20070625
  Transmission Date: 20080405
  Serious: No
  Sender: FDA-Public Use
  Company Number: US-AMGEN-KDL231179

PATIENT
  Sex: Female

DRUGS (4)
  1. ENBREL [Suspect]
     Indication: RHEUMATOID ARTHRITIS
     Dates: start: 20070505
  2. ARAVA [Concomitant]
     Route: 048
     Dates: start: 20000101
  3. SULFASALAZINE [Concomitant]
     Route: 048
     Dates: start: 20050101
  4. PLAQUENIL [Concomitant]
     Route: 048
     Dates: start: 19900101

REACTIONS (1)
  - OEDEMA PERIPHERAL [None]
